FAERS Safety Report 9499415 (Version 1)
Quarter: 2013Q3

REPORT INFORMATION
  Report Type: Spontaneous
  Country: US (occurrence: None)
  Receive Date: 20130903
  Receipt Date: 20130903
  Transmission Date: 20140515
  Serious: Yes (Other)
  Sender: FDA-Public Use
  Company Number: None

PATIENT
  Age: 62 Year
  Sex: Male

DRUGS (7)
  1. TASIGNA [Suspect]
     Indication: CHRONIC MYELOID LEUKAEMIA
     Route: 048
     Dates: start: 20121124, end: 20130830
  2. AMLODIPINE [Concomitant]
  3. TAMSULOSIN [Concomitant]
  4. GABAPENTIN [Concomitant]
  5. TORSEMIDE [Concomitant]
  6. NEPHRON PHARMACEUTICALS CORPORATION [Concomitant]
  7. OXCARBAZEPIN [Concomitant]

REACTIONS (3)
  - Rash [None]
  - Rash [None]
  - Heart rate increased [None]
